FAERS Safety Report 7169965-1 (Version None)
Quarter: 2010Q4

REPORT INFORMATION
  Report Type: 
  Country: None (occurrence: None)
  Receive Date: 20101206
  Receipt Date: 20101119
  Transmission Date: 20110411
  Serious: Yes (Hospitalization, Other)
  Sender: FDA-Public Use
  Company Number: 000563

PATIENT
  Sex: Female
  Weight: 57 kg

DRUGS (5)
  1. VIMPAT [Suspect]
     Indication: EPILEPSY
     Dosage: 100 MG BID
     Dates: start: 20090226, end: 20090313
  2. LAMOTRIGINE [Concomitant]
  3. VALPROIC ACID [Concomitant]
  4. LEVETIRACETAM [Concomitant]
  5. OLANZAPINE [Concomitant]

REACTIONS (1)
  - PSYCHOTIC DISORDER [None]
